FAERS Safety Report 17526295 (Version 1)
Quarter: 2020Q1

REPORT INFORMATION
  Report Type: Spontaneous
  Country: CZ (occurrence: CZ)
  Receive Date: 20200311
  Receipt Date: 20200311
  Transmission Date: 20200409
  Serious: Yes (Hospitalization, Other)
  Sender: FDA-Public Use
  Company Number: CZ-MYLANLABS-2020M1025240

PATIENT
  Age: 56 Year
  Sex: Male

DRUGS (18)
  1. METHOTREXATE. [Suspect]
     Active Substance: METHOTREXATE
     Indication: MANTLE CELL LYMPHOMA
     Dosage: ONE CYCLE OF HIGH DOSE METHOTREXATE (HD MTX)
     Route: 065
     Dates: start: 201901
  2. RITUXIMAB. [Suspect]
     Active Substance: RITUXIMAB
     Indication: MANTLE CELL LYMPHOMA
     Dosage: COMPLETED RESCUE THERAPY BY THE ADMINISTRATION OF THE 3RD CYCLE OF RICE
     Route: 065
  3. RITUXIMAB. [Suspect]
     Active Substance: RITUXIMAB
     Dosage: UNK, (HIGH DOSE CYTARABINE (HD ARAC) WITH RITUXIMAB)
     Dates: start: 201902
  4. CYTARABINE. [Suspect]
     Active Substance: CYTARABINE
     Indication: MANTLE CELL LYMPHOMA
     Dosage: HIGH DOSE CYTARABINE (HD ARAC) WITH RITUXIMAB
     Route: 065
     Dates: start: 201902
  5. BENDAMUSTINE [Suspect]
     Active Substance: BENDAMUSTINE
     Indication: MANTLE CELL LYMPHOMA
     Dosage: SECOND CYCLE OF R-B
     Dates: start: 201901
  6. METHOTREXATE. [Suspect]
     Active Substance: METHOTREXATE
     Dosage: UNK, (TWO CYCLES OF CNS PENETRATING CHEMOTHERAPY (MTX AND ARAC))
  7. RITUXIMAB. [Suspect]
     Active Substance: RITUXIMAB
     Dosage: UNK, (NORDIC PROTOCOL (3 CYCLES R-MAXICHOP ALTERNATING WITH 3 CYCLES OF RITUXIMAB
  8. CYTARABINE. [Suspect]
     Active Substance: CYTARABINE
     Dosage: UNK, (TWO CYCLES OF CNS PENETRATING CHEMOTHERAPY (MTX AND ARAC))
  9. ICE (CARBOPLATIN\ETOPOSIDE\IFOSFAMIDE) [Suspect]
     Active Substance: CARBOPLATIN\ETOPOSIDE\IFOSFAMIDE
     Indication: MANTLE CELL LYMPHOMA
     Dosage: COMPLETED RESCUE THERAPY BY THE ADMINISTRATION OF THE 3RD CYCLE OF RICE
  10. CYTARABINE. [Suspect]
     Active Substance: CYTARABINE
     Dosage: UNK, (FOLLOWING CYCLE OF HD ARAC WAS FORTIFIED WITH BENDAMUSTINE (SO CALLED R-BAC))
  11. CARMUSTINE. [Concomitant]
     Active Substance: CARMUSTINE
     Dosage: UNK
  12. RITUXIMAB. [Suspect]
     Active Substance: RITUXIMAB
     Dosage: INITIATED RESCUE THERAPY WITH PLATINUM REGIMEN (R-ICE; RITUXIMAB, IPHOSPHAMIDE, CARBOPLATIN, ETOPOSI
     Route: 065
  13. RITUXIMAB. [Suspect]
     Active Substance: RITUXIMAB
     Dosage: UNK, (SECOND CYCLE OF R-B)
     Dates: start: 201901
  14. BENDAMUSTINE [Suspect]
     Active Substance: BENDAMUSTINE
     Dosage: UNK, (INITIATED THIRD LINE TREATMENT WITH A COMBINATION OF RITUXIMAB AND BENDAMUSTINE (R-B REGIMEN))
  15. RITUXIMAB. [Suspect]
     Active Substance: RITUXIMAB
     Dosage: GIVEN THIRD LINE TREATMENT WITH A COMBINATION OF RITUXIMAB AND BENDAMUSTINE (R-B REGIMEN)
  16. BENDAMUSTINE [Suspect]
     Active Substance: BENDAMUSTINE
     Dosage: UNK, (FOLLOWING CYCLE OF HD ARAC WAS THUS FORTIFIED WITH BENDAMUSTINE (SO CALLED R-BAC))
  17. ICE (CARBOPLATIN\ETOPOSIDE\IFOSFAMIDE) [Suspect]
     Active Substance: CARBOPLATIN\ETOPOSIDE\IFOSFAMIDE
     Dosage: UNK, (INITIATE RESCUE THERAPY WITH PLATINUM REGIMEN (R-ICE; RITUXIMAB, IPHOSPHAMIDE)
  18. MELPHALAN. [Concomitant]
     Active Substance: MELPHALAN
     Dosage: UNK

REACTIONS (5)
  - Product use in unapproved indication [Unknown]
  - Drug ineffective [Unknown]
  - Lymphoma [Recovered/Resolved]
  - Renal failure [Unknown]
  - Disease progression [Recovered/Resolved]
